FAERS Safety Report 7492709-0 (Version None)
Quarter: 2011Q2

REPORT INFORMATION
  Report Type: 
  Country: None (occurrence: None)
  Receive Date: 20110519
  Receipt Date: 20110511
  Transmission Date: 20111010
  Serious: Yes (Hospitalization)
  Sender: FDA-Public Use
  Company Number: JP-NOVOPROD-328036

PATIENT
  Age: 68 Year
  Sex: Female

DRUGS (4)
  1. MIGLITOL [Concomitant]
     Dosage: 50 MG, QD
     Route: 048
  2. VICTOZA [Suspect]
     Indication: TYPE 2 DIABETES MELLITUS
     Dosage: 0.9 MG, QD
     Route: 058
     Dates: start: 20100802
  3. AMARYL [Concomitant]
     Dosage: 2 MG, QD
     Route: 048
  4. METGLUCO [Concomitant]
     Dosage: 1500 MG, QD
     Route: 048

REACTIONS (2)
  - DYSGEUSIA [None]
  - ANGINA UNSTABLE [None]
